FAERS Safety Report 4760327-0 (Version None)
Quarter: 2005Q3

REPORT INFORMATION
  Report Type: 
  Country: None (occurrence: None)
  Receive Date: 20050902
  Receipt Date: 20050819
  Transmission Date: 20060218
  Serious: Yes (Other)
  Sender: FDA-Public Use
  Company Number: GBWYE920019AUG05

PATIENT
  Age: 76 Year
  Sex: Female

DRUGS (5)
  1. ENBREL [Suspect]
     Indication: RHEUMATOID ARTHRITIS
     Route: 058
     Dates: start: 20050615, end: 20050630
  2. CALCICHEW-D3 [Concomitant]
     Indication: OSTEOPOROSIS
     Dosage: 2 TABLETS, FREQUENCY UNKNOWN
     Route: 048
  3. ASPIRIN [Concomitant]
     Indication: HYPERTENSION
     Route: 048
  4. ADIZEM [Concomitant]
     Indication: HYPERTENSION
     Route: 048
  5. BUDESONIDE [Concomitant]
     Indication: ASTHMA
     Dosage: UNKNOWN
     Route: 055

REACTIONS (3)
  - DIARRHOEA [None]
  - MALAISE [None]
  - RASH [None]
